FAERS Safety Report 5952474-2 (Version None)
Quarter: 2008Q4

REPORT INFORMATION
  Report Type: 
  Country: None (occurrence: None)
  Receive Date: 20081113
  Receipt Date: 20081104
  Transmission Date: 20090506
  Serious: Yes (Hospitalization)
  Sender: FDA-Public Use
  Company Number: US-PFIZER INC-2008087275

PATIENT
  Sex: Female
  Weight: 73 kg

DRUGS (2)
  1. SU-011,248 [Suspect]
     Indication: BREAST CANCER
     Route: 048
     Dates: start: 20080604, end: 20081008
  2. TYLENOL [Concomitant]
     Indication: PAIN

REACTIONS (1)
  - PLEURAL EFFUSION [None]
